FAERS Safety Report 7408823-1 (Version None)
Quarter: 2011Q2

REPORT INFORMATION
  Report Type: 
  Country: None (occurrence: None)
  Receive Date: 20110412
  Receipt Date: 20110328
  Transmission Date: 20111010
  Serious: No
  Sender: FDA-Public Use
  Company Number: US-B.I. PHARMACEUTICALS,INC./RIDGEFIELD-2011-BP-09431BP

PATIENT
  Age: 68 Year
  Sex: Male

DRUGS (5)
  1. NEXIUM [Concomitant]
  2. DILTIAZEM [Concomitant]
     Dates: start: 20110326
  3. DIOVAN [Concomitant]
  4. PRADAXA [Suspect]
     Indication: ATRIAL FIBRILLATION
     Dosage: 300 MG
     Route: 048
     Dates: start: 20110326
  5. PRADAXA [Suspect]
     Indication: CEREBROVASCULAR ACCIDENT PROPHYLAXIS

REACTIONS (4)
  - OCULAR HYPERAEMIA [None]
  - PYREXIA [None]
  - INFLUENZA LIKE ILLNESS [None]
  - EYE PRURITUS [None]
